FAERS Safety Report 13599818 (Version 1)
Quarter: 2017Q2

REPORT INFORMATION
  Report Type: Report from Study
  Country: None (occurrence: BR)
  Receive Date: 20170601
  Receipt Date: 20170601
  Transmission Date: 20170830
  Serious: Yes (Other)
  Sender: FDA-Public Use
  Company Number: BR-ABBVIE-17K-020-1991834-00

PATIENT
  Age: 65 Year
  Sex: Female
  Weight: 50 kg

DRUGS (4)
  1. HUMIRA [Suspect]
     Active Substance: ADALIMUMAB
     Route: 058
  2. HUMIRA [Suspect]
     Active Substance: ADALIMUMAB
     Route: 058
  3. HUMIRA [Suspect]
     Active Substance: ADALIMUMAB
     Indication: CROHN^S DISEASE
     Dosage: LOADING DOSE- WEEK 1
     Route: 058
     Dates: start: 20150722, end: 20150722
  4. HUMIRA [Suspect]
     Active Substance: ADALIMUMAB
     Dosage: LOADING DOSES WEEK 2
     Route: 058

REACTIONS (8)
  - Intestinal obstruction [Unknown]
  - Chromaturia [Recovering/Resolving]
  - Chromaturia [Recovered/Resolved]
  - Lip dry [Recovered/Resolved]
  - Procedural pain [Recovering/Resolving]
  - Injection site pain [Recovered/Resolved]
  - Oral discomfort [Recovered/Resolved]
  - Cheilitis [Recovered/Resolved]

NARRATIVE: CASE EVENT DATE: 20150722
